FAERS Safety Report 13327405 (Version 1)
Quarter: 2017Q1

REPORT INFORMATION
  Report Type: Spontaneous
  Country: US (occurrence: US)
  Receive Date: 20170313
  Receipt Date: 20170313
  Transmission Date: 20170428
  Serious: No
  Sender: FDA-Public Use
  Company Number: US-JNJFOC-20161221780

PATIENT
  Age: 70 Year
  Sex: Female
  Weight: 72.58 kg

DRUGS (4)
  1. WOMENS ROGAINE UNSCENTED [Suspect]
     Active Substance: MINOXIDIL
     Indication: ALOPECIA
     Dosage: 1/2 CAPFUL
     Route: 061
  2. VIVISCAL [Concomitant]
     Indication: ALOPECIA
     Dosage: 2 TABLETS
     Route: 065
  3. WOMENS ROGAINE UNSCENTED [Suspect]
     Active Substance: MINOXIDIL
     Route: 061
  4. VITAMINS NOS [Concomitant]
     Active Substance: VITAMINS
     Indication: ALOPECIA
     Dosage: 6 MONTHS
     Route: 065

REACTIONS (3)
  - Off label use [Unknown]
  - Product formulation issue [Unknown]
  - Drug ineffective for unapproved indication [Unknown]
